FAERS Safety Report 22389723 (Version 2)
Quarter: 2023Q2

REPORT INFORMATION
  Report Type: Report from Study
  Country: BE (occurrence: BE)
  Receive Date: 20230531
  Receipt Date: 20230601
  Transmission Date: 20230722
  Serious: Yes (Other)
  Sender: FDA-Public Use
  Company Number: BE-ABBVIE-4761734

PATIENT
  Sex: Female
  Weight: 56 kg

DRUGS (7)
  1. CARBIDOPA\LEVODOPA [Suspect]
     Active Substance: CARBIDOPA\LEVODOPA
     Indication: Parkinson^s disease
     Dosage: MD 5.0 ML, CD 3.7 ML/H ED 1.9 ML, CND 2.6 ML/H,?DURATION TEXT: REMAINS AT 24H
     Route: 050
     Dates: start: 20220914, end: 20220930
  2. CARBIDOPA\LEVODOPA [Suspect]
     Active Substance: CARBIDOPA\LEVODOPA
     Dosage: MD 5.0 ML, CD 3.8 ML/H ED 2.1 ML CND 2.6 ML/H,?DURATION TEXT: REMAINS AT 24H
     Route: 050
     Dates: start: 20220930, end: 20230125
  3. CARBIDOPA\LEVODOPA [Suspect]
     Active Substance: CARBIDOPA\LEVODOPA
     Dosage: DURATION TEXT: REMAINS AT 24H
     Route: 050
     Dates: start: 20120813
  4. CARBIDOPA\LEVODOPA [Suspect]
     Active Substance: CARBIDOPA\LEVODOPA
     Dosage: MD 5.0 ML, CD 3.9 ML/H ED 2.2 ML CND 2.9 ML/H,?DURATION TEXT: REMAINS AT 24H
     Route: 050
     Dates: start: 20230125, end: 20230517
  5. CARBIDOPA\LEVODOPA [Suspect]
     Active Substance: CARBIDOPA\LEVODOPA
     Dosage: MD 5.0 ML, CD 3.9 ML,  ED 2.2 ML, CND 2.8 ML/H REMAINS AT 24H,?DURATION TEXT: REMAINS AT 24H
     Route: 050
     Dates: start: 20230517
  6. REQUIP [Concomitant]
     Active Substance: ROPINIROLE HYDROCHLORIDE
     Indication: Product used for unknown indication
     Dosage: FORM STRENGTH: 8 MG
  7. BENSERAZIDE\LEVODOPA [Concomitant]
     Active Substance: BENSERAZIDE\LEVODOPA
     Indication: Product used for unknown indication
     Dosage: TIME INTERVAL: 0.16666667 DAYS: 1/4 TABLET + 1/8 TABLET?FORM STRENGTH: 250 MG,?PROLOPA DISP

REACTIONS (4)
  - Asthenia [Unknown]
  - Emotional distress [Unknown]
  - Incorrect dose administered [Unknown]
  - Unevaluable event [Unknown]
